FAERS Safety Report 9263453 (Version 1)
Quarter: 2013Q2

REPORT INFORMATION
  Report Type: Spontaneous
  Country: US (occurrence: US)
  Receive Date: 20130430
  Receipt Date: 20130430
  Transmission Date: 20140414
  Serious: No
  Sender: FDA-Public Use
  Company Number: US-ABBOTT-12P-163-0966800-00

PATIENT
  Age: 32 Year
  Sex: Female

DRUGS (1)
  1. CREON [Suspect]
     Indication: PANCREATITIS CHRONIC

REACTIONS (2)
  - Rash [Unknown]
  - Urticaria [Unknown]
